FAERS Safety Report 25353028 (Version 1)
Quarter: 2025Q2

REPORT INFORMATION
  Report Type: Spontaneous
  Country: US (occurrence: US)
  Receive Date: 20250523
  Receipt Date: 20250523
  Transmission Date: 20250716
  Serious: No
  Sender: ALKERMES
  Company Number: US-ALKERMES INC.-ALK-2025-001383

PATIENT
  Age: 37 Year
  Sex: Female
  Weight: 90.703 kg

DRUGS (3)
  1. LYBALVI [Suspect]
     Active Substance: OLANZAPINE\SAMIDORPHAN L-MALATE
     Indication: Product used for unknown indication
     Route: 048
  2. SUBLOCADE [Suspect]
     Active Substance: BUPRENORPHINE
     Indication: Product used for unknown indication
     Route: 065
     Dates: end: 20241226
  3. ZYPREXA [Concomitant]
     Active Substance: OLANZAPINE
     Indication: Product used for unknown indication
     Route: 065

REACTIONS (5)
  - Hyperhidrosis [Unknown]
  - Contraindicated product administered [Unknown]
  - Drug screen positive [Unknown]
  - Restlessness [Unknown]
  - Nausea [Unknown]

NARRATIVE: CASE EVENT DATE: 20250101
